FAERS Safety Report 11679709 (Version 3)
Quarter: 2015Q4

REPORT INFORMATION
  Report Type: Spontaneous
  Country: US (occurrence: US)
  Receive Date: 20151027
  Receipt Date: 20151110
  Transmission Date: 20160304
  Serious: No
  Sender: FDA-Public Use
  Company Number: US-ELI_LILLY_AND_COMPANY-US201008007001

PATIENT
  Age: 61 Year
  Sex: Female

DRUGS (6)
  1. FORTEO [Suspect]
     Active Substance: TERIPARATIDE
     Indication: OSTEOPOROSIS
     Dosage: 20 UG, QD
     Dates: start: 20100802
  2. FORTEO [Suspect]
     Active Substance: TERIPARATIDE
     Dosage: 20 UG, QD
  3. FORTEO [Suspect]
     Active Substance: TERIPARATIDE
     Dosage: 20 UG, QD
  4. FORTEO [Suspect]
     Active Substance: TERIPARATIDE
     Dosage: 20 UG, QD
  5. FORTEO [Suspect]
     Active Substance: TERIPARATIDE
     Dosage: 20 UG, QD
     Route: 058
  6. FORTEO [Suspect]
     Active Substance: TERIPARATIDE
     Dosage: 20 UG, QD

REACTIONS (19)
  - Swelling [Unknown]
  - Fluid retention [Unknown]
  - Musculoskeletal pain [Unknown]
  - Myalgia [Unknown]
  - Alpha-1 anti-trypsin deficiency [Unknown]
  - Pain in extremity [Unknown]
  - Weight increased [Recovering/Resolving]
  - Joint injury [Unknown]
  - Abdominal distension [Unknown]
  - Chronic obstructive pulmonary disease [Unknown]
  - Cholelithiasis [Unknown]
  - Spleen disorder [Unknown]
  - Tendonitis [Unknown]
  - Pain [Unknown]
  - Liver disorder [Unknown]
  - Pain [Unknown]
  - Muscle strain [Unknown]
  - Bursitis [Unknown]
  - Arthralgia [Unknown]

NARRATIVE: CASE EVENT DATE: 201103
